FAERS Safety Report 7209710-4 (Version None)
Quarter: 2011Q1

REPORT INFORMATION
  Report Type: 
  Country: None (occurrence: None)
  Receive Date: 20110104
  Receipt Date: 20101210
  Transmission Date: 20110831
  Serious: Yes (Other)
  Sender: FDA-Public Use
  Company Number: CA-PURDUE-USA-2010-0047350

PATIENT
  Sex: Female
  Weight: 76 kg

DRUGS (3)
  1. PLACEBO [Suspect]
     Dosage: 0.07 MG/KG, SINGLE
     Dates: start: 20100922, end: 20100922
  2. NALOXONE [Concomitant]
     Dosage: 0.8 MG, SEE TEXT
     Route: 042
     Dates: start: 20100920, end: 20100920
  3. OXYCODONE INJECTABLE 10 MG/ML [Suspect]
     Indication: DRUG LEVEL
     Dosage: 0.07 MG/KG, SINGLE
     Route: 042
     Dates: start: 20100921, end: 20100921

REACTIONS (1)
  - VENTRICULAR TACHYCARDIA [None]
